FAERS Safety Report 6682014-4 (Version None)
Quarter: 2010Q2

REPORT INFORMATION
  Report Type: 
  Country: None (occurrence: None)
  Receive Date: 20100414
  Receipt Date: 20100414
  Transmission Date: 20101027
  Serious: Yes (Other)
  Sender: FDA-Public Use
  Company Number: None

PATIENT
  Age: 10 Year
  Sex: Female
  Weight: 40.8237 kg

DRUGS (4)
  1. TOPIRAMATE [Suspect]
     Indication: AGITATION
     Dosage: 15 MG. TITRATED UP TO 75 MGS ONCE PER DAY PO
     Route: 048
     Dates: start: 20090227, end: 20091022
  2. TOPIRAMATE [Suspect]
     Indication: COORDINATION ABNORMAL
     Dosage: 15 MG. TITRATED UP TO 75 MGS ONCE PER DAY PO
     Route: 048
     Dates: start: 20090227, end: 20091022
  3. TOPIRAMATE [Suspect]
     Indication: PARANOIA
     Dosage: 15 MG. TITRATED UP TO 75 MGS ONCE PER DAY PO
     Route: 048
     Dates: start: 20090227, end: 20091022
  4. TOPIRAMATE [Suspect]
     Indication: THINKING ABNORMAL
     Dosage: 15 MG. TITRATED UP TO 75 MGS ONCE PER DAY PO
     Route: 048
     Dates: start: 20090227, end: 20091022

REACTIONS (1)
  - PARANOIA [None]
